FAERS Safety Report 6704468-7 (Version None)
Quarter: 2010Q2

REPORT INFORMATION
  Report Type: 
  Country: None (occurrence: None)
  Receive Date: 20100430
  Receipt Date: 20100422
  Transmission Date: 20101027
  Serious: Yes (Hospitalization)
  Sender: FDA-Public Use
  Company Number: GXKR2010GB04566

PATIENT
  Age: 73 Year
  Sex: Female

DRUGS (5)
  1. OMEPRAZOLE [Suspect]
     Indication: GASTROOESOPHAGEAL REFLUX DISEASE
     Dosage: 20-40 MG DAILY
     Dates: start: 19990101, end: 20080101
  2. ESOMEPRAZOLE (NGX) [Suspect]
     Indication: BARRETT'S OESOPHAGUS
     Dosage: 20 MG, QD
     Dates: start: 20080101, end: 20080101
  3. PANTOPRAZOLE [Suspect]
     Indication: BARRETT'S OESOPHAGUS
     Dosage: 40 MG, QD
     Route: 048
     Dates: start: 20080101, end: 20080101
  4. FUROSEMIDE [Concomitant]
     Indication: HYPERTENSION
     Dosage: 20-40 MG
     Dates: start: 20050101
  5. BENDROFLUMETHIAZIDE [Concomitant]
     Indication: HYPERTENSION
     Dosage: 2.5 MG, QD
     Dates: start: 20010101

REACTIONS (6)
  - CIRCULATORY COLLAPSE [None]
  - HYPOMAGNESAEMIA [None]
  - LETHARGY [None]
  - MUSCLE SPASMS [None]
  - PARAESTHESIA [None]
  - TETANY [None]
